FAERS Safety Report 6232215-4 (Version None)
Quarter: 2009Q2

REPORT INFORMATION
  Report Type: 
  Country: None (occurrence: None)
  Receive Date: 20090615
  Receipt Date: 20090615
  Transmission Date: 20091009
  Serious: Yes (Other)
  Sender: FDA-Public Use
  Company Number: None

PATIENT
  Age: 59 Year
  Sex: Female
  Weight: 54.4316 kg

DRUGS (2)
  1. LYRICA [Suspect]
     Indication: FIBROMYALGIA
     Dosage: 75 MG ORALLY
     Route: 048
     Dates: start: 20081101, end: 20081201
  2. LYRICA [Suspect]
     Dosage: 75 MG ROUND THE CLOCK ORALLY
     Route: 048

REACTIONS (1)
  - ADVERSE EVENT [None]
